FAERS Safety Report 20975014 (Version 1)
Quarter: 2022Q2

REPORT INFORMATION
  Report Type: Spontaneous
  Country: IT (occurrence: IT)
  Receive Date: 20220617
  Receipt Date: 20220617
  Transmission Date: 20220721
  Serious: Yes (Other)
  Sender: FDA-Public Use
  Company Number: IT-drreddys-LIT/ITL/22/0151276

PATIENT
  Age: 17 Year
  Sex: Male

DRUGS (10)
  1. BORTEZOMIB [Suspect]
     Active Substance: BORTEZOMIB
     Indication: Acute lymphocytic leukaemia
     Dosage: TACL CONSORTIUM 2005-003 SCHEME COMPRISING
     Route: 042
  2. VINCRISTINE [Suspect]
     Active Substance: VINCRISTINE
     Indication: Acute lymphocytic leukaemia
     Route: 042
  3. FLUDARABINE [Suspect]
     Active Substance: FLUDARABINE PHOSPHATE
     Indication: Acute lymphocytic leukaemia
     Route: 042
  4. CYTARABINE [Suspect]
     Active Substance: CYTARABINE
     Indication: Acute lymphocytic leukaemia
     Route: 037
  5. DOXORUBICIN [Suspect]
     Active Substance: DOXORUBICIN
     Indication: Acute lymphocytic leukaemia
     Dosage: TACL CONSORTIUM 2005-003 SCHEME COMPRISING
     Route: 042
  6. PEGASPARGASE [Suspect]
     Active Substance: PEGASPARGASE
     Indication: Acute lymphocytic leukaemia
     Route: 030
  7. DEXAMETHASONE [Concomitant]
     Active Substance: DEXAMETHASONE
     Indication: Acute lymphocytic leukaemia
     Dosage: TACL CONSORTIUM 2005-003 SCHEME COMPRISING
     Route: 048
  8. ANAKINRA [Concomitant]
     Active Substance: ANAKINRA
     Indication: Acute lymphocytic leukaemia
     Route: 058
  9. ANAKINRA [Concomitant]
     Active Substance: ANAKINRA
     Route: 058
  10. METHOTREXATE [Concomitant]
     Active Substance: METHOTREXATE
     Indication: Product used for unknown indication
     Dosage: HIGH DOSE

REACTIONS (7)
  - Venoocclusive liver disease [Unknown]
  - Cystitis haemorrhagic [Unknown]
  - Cytopenia [Unknown]
  - Sepsis [Unknown]
  - Cytomegalovirus hepatitis [Unknown]
  - Renal failure [Unknown]
  - Cardiac failure [Unknown]
